FAERS Safety Report 7317692-X (Version None)
Quarter: 2011Q1

REPORT INFORMATION
  Report Type: 
  Country: None (occurrence: None)
  Receive Date: 20110226
  Receipt Date: 20101201
  Transmission Date: 20110831
  Serious: No
  Sender: FDA-Public Use
  Company Number: US-ALLERGAN-1015535US

PATIENT

DRUGS (2)
  1. BOTOX COSMETIC [Suspect]
     Indication: SKIN WRINKLING
     Dosage: 12 UNITS, SINGLE
     Dates: start: 20101012, end: 20101012
  2. BOTOX COSMETIC [Suspect]
     Dosage: 4 UNITS, SINGLE
     Dates: start: 20101112, end: 20101112

REACTIONS (1)
  - MUSCLE TIGHTNESS [None]
